FAERS Safety Report 7573298-9 (Version None)
Quarter: 2011Q2

REPORT INFORMATION
  Report Type: 
  Country: None (occurrence: None)
  Receive Date: 20110627
  Receipt Date: 20110614
  Transmission Date: 20111010
  Serious: Yes (Hospitalization, Other)
  Sender: FDA-Public Use
  Company Number: PHHY2011BR53762

PATIENT
  Sex: Male

DRUGS (1)
  1. DIOVAN HCT [Suspect]
     Indication: HYPERTENSION
     Dosage: 1 DF (80 MG VALSARTAN/ 12.5 MG HYDROCHLOROTHIAZIDE) DAILY
     Route: 048
     Dates: start: 20050101

REACTIONS (2)
  - PITUITARY TUMOUR [None]
  - FISTULA [None]
